FAERS Safety Report 15577131 (Version 1)
Quarter: 2018Q4

REPORT INFORMATION
  Report Type: Report from Study
  Country: US (occurrence: US)
  Receive Date: 20181101
  Receipt Date: 20181101
  Transmission Date: 20190205
  Serious: Yes (Other)
  Sender: FDA-Public Use
  Company Number: US-CELGENEUS-USA-20181010250

PATIENT
  Age: 69 Year
  Sex: Female

DRUGS (4)
  1. ICE [Concomitant]
     Active Substance: MENTHOL
     Indication: B-CELL LYMPHOMA
     Route: 065
  2. REVLIMID [Suspect]
     Active Substance: LENALIDOMIDE
     Indication: B-CELL LYMPHOMA
     Route: 048
     Dates: start: 201808, end: 201809
  3. GAZYVARO [Concomitant]
     Active Substance: OBINUTUZUMAB
     Indication: B-CELL LYMPHOMA
     Route: 065
  4. REVLIMID [Suspect]
     Active Substance: LENALIDOMIDE
     Indication: OFF LABEL USE

REACTIONS (8)
  - Weight decreased [Unknown]
  - Febrile neutropenia [Unknown]
  - Thrombocytopenia [Unknown]
  - Anaemia [Unknown]
  - Infection [Unknown]
  - Mucosal inflammation [Unknown]
  - Neutropenia [Unknown]
  - Nausea [Unknown]

NARRATIVE: CASE EVENT DATE: 2018
